FAERS Safety Report 6498341-X (Version None)
Quarter: 2009Q4

REPORT INFORMATION
  Report Type: 
  Country: None (occurrence: None)
  Receive Date: 20091127
  Receipt Date: 20090421
  Transmission Date: 20100525
  Serious: Yes (Hospitalization)
  Sender: FDA-Public Use
  Company Number: 284525

PATIENT
  Age: 49 Year
  Sex: Female

DRUGS (3)
  1. NOVOLOG [Suspect]
     Indication: INSULIN-REQUIRING TYPE 2 DIABETES MELLITUS
     Dosage: 32 U, QD, SUBCUTANEOUS
     Route: 058
     Dates: start: 20080101
  2. NOVOLOG [Suspect]
  3. NOVOLOG [Suspect]
     Indication: INSULIN-REQUIRING TYPE 2 DIABETES MELLITUS
     Dosage: , SUBCUTANEOUS
     Route: 058

REACTIONS (4)
  - BLOOD GLUCOSE INCREASED [None]
  - DEVICE FAILURE [None]
  - DRUG INEFFECTIVE [None]
  - NAUSEA [None]
